FAERS Safety Report 5475127-6 (Version None)
Quarter: 2007Q4

REPORT INFORMATION
  Report Type: 
  Country: None (occurrence: None)
  Receive Date: 20071002
  Receipt Date: 20070924
  Transmission Date: 20080405
  Serious: Yes (Hospitalization, Other)
  Sender: FDA-Public Use
  Company Number: FR-BOEHRINGER INGELHEIM PHARMACEUTICALS, INC.-2007-FF-00937FF

PATIENT
  Age: 78 Year
  Sex: Male

DRUGS (2)
  1. COMBIVENT [Suspect]
     Indication: BRONCHITIS
     Dosage: REPORTED IN THE NARRATIVE
     Route: 055
     Dates: start: 19970101
  2. COMBIVENT [Suspect]
     Indication: EMPHYSEMA

REACTIONS (6)
  - BILE DUCT STONE [None]
  - DYSGEUSIA [None]
  - GENERAL PHYSICAL HEALTH DETERIORATION [None]
  - LUNG CYST BENIGN [None]
  - PANCREATITIS ACUTE [None]
  - SUBCUTANEOUS EMPHYSEMA [None]
